FAERS Safety Report 25628588 (Version 1)
Quarter: 2025Q3

REPORT INFORMATION
  Report Type: Spontaneous
  Country: US (occurrence: US)
  Receive Date: 20250731
  Receipt Date: 20250731
  Transmission Date: 20251020
  Serious: No
  Sender: Tarsus Pharmaceuticals
  Company Number: US-TARSUS PHARMACEUTICALS-TSP-US-2025-000468

PATIENT

DRUGS (1)
  1. XDEMVY [Suspect]
     Active Substance: LOTILANER
     Indication: Ocular demodicosis
     Dosage: 1 DROP, BID (INSTILL ONE DROP INTO BOTH EYES TWICE A DAY FOR SIX WEEKS)
     Route: 047
     Dates: start: 20250516, end: 20250516

REACTIONS (3)
  - Wrong technique in product usage process [Unknown]
  - Product contamination [Unknown]
  - Therapy interrupted [Unknown]

NARRATIVE: CASE EVENT DATE: 20250516
